FAERS Safety Report 6847297-6 (Version None)
Quarter: 2010Q3

REPORT INFORMATION
  Report Type: 
  Country: None (occurrence: None)
  Receive Date: 20100713
  Receipt Date: 20100628
  Transmission Date: 20110219
  Serious: Yes (Hospitalization)
  Sender: FDA-Public Use
  Company Number: 1000014976

PATIENT
  Age: 69 Year
  Sex: Male
  Weight: 103 kg

DRUGS (14)
  1. CITALOPRAM HYDROBROMIDE [Suspect]
     Dosage: 20 MG (20 MG, 1 IN 1 D), ORAL
     Route: 048
     Dates: start: 20090901
  2. TAHOR [Suspect]
     Dosage: 20 MG (20 MG, 1 IN 1 D), ORAL
     Route: 048
     Dates: start: 20090901, end: 20100501
  3. ISOPTIN [Suspect]
     Dosage: 240 MG 9240 MG, 1 IN 1 D), ORAL
     Route: 048
     Dates: start: 20090901
  4. VASTAREL [Suspect]
     Dosage: 70 MG (35 MG, 2 IN 1 D), ORAL
     Route: 048
     Dates: start: 20090901, end: 20100501
  5. LYRICA [Suspect]
     Dosage: ORAL
     Route: 048
     Dates: start: 20090901, end: 20100501
  6. ASPEGIC 1000 [Suspect]
     Dates: end: 20100314
  7. DIFFU K [Concomitant]
  8. LASIX [Concomitant]
  9. CORTANCYL [Concomitant]
  10. NEXIUM [Concomitant]
  11. DIAMICRON [Concomitant]
  12. AZOPT [Concomitant]
  13. MYDRIATICUM [Concomitant]
  14. ATROVENT [Concomitant]

REACTIONS (3)
  - ACQUIRED HAEMOPHILIA [None]
  - EPISTAXIS [None]
  - HAEMOGLOBIN DECREASED [None]
